FAERS Safety Report 24833416 (Version 2)
Quarter: 2025Q1

REPORT INFORMATION
  Report Type: Spontaneous
  Country: US (occurrence: US)
  Receive Date: 20250112
  Receipt Date: 20250228
  Transmission Date: 20250409
  Serious: Yes (Hospitalization)
  Sender: AUROBINDO
  Company Number: US-AUROBINDO-AUR-APL-2025-001225

PATIENT
  Age: 62 Year
  Sex: Male

DRUGS (2)
  1. DEXAMETHASONE [Suspect]
     Active Substance: DEXAMETHASONE
     Indication: Encephalopathy
     Route: 065
  2. TOCILIZUMAB [Suspect]
     Active Substance: TOCILIZUMAB
     Indication: Encephalopathy
     Route: 065

REACTIONS (1)
  - Drug ineffective [Unknown]
